FAERS Safety Report 12766691 (Version 1)
Quarter: 2016Q3

REPORT INFORMATION
  Report Type: Spontaneous
  Country: US (occurrence: US)
  Receive Date: 20160921
  Receipt Date: 20160921
  Transmission Date: 20161109
  Serious: Yes (Other)
  Sender: FDA-Public Use
  Company Number: US-BIOGEN-2016BI00292528

PATIENT
  Sex: Male

DRUGS (1)
  1. TYSABRI [Suspect]
     Active Substance: NATALIZUMAB
     Indication: MULTIPLE SCLEROSIS
     Route: 042
     Dates: start: 20151001

REACTIONS (8)
  - Feeling drunk [Unknown]
  - Euphoric mood [Unknown]
  - Gait disturbance [Unknown]
  - Dizziness [Unknown]
  - Anxiety [Unknown]
  - Mental impairment [Unknown]
  - Suicidal ideation [Unknown]
  - Depression [Unknown]
